FAERS Safety Report 14108141 (Version 2)
Quarter: 2018Q2

REPORT INFORMATION
  Report Type: Spontaneous
  Country: US (occurrence: US)
  Receive Date: 20171019
  Receipt Date: 20180427
  Transmission Date: 20180711
  Serious: Yes (Death, Hospitalization, Other)
  Sender: FDA-Public Use
  Company Number: US-BAYER-2017-193905

PATIENT
  Age: 60 Year
  Sex: Male

DRUGS (1)
  1. KOGENATE FS [Suspect]
     Active Substance: ANTIHEMOPHILIC FACTOR, HUMAN RECOMBINANT
     Dosage: 4000 IU, UNK

REACTIONS (4)
  - Adverse drug reaction [None]
  - Anti factor VIII antibody positive [None]
  - Chills [Fatal]
  - Device related infection [None]

NARRATIVE: CASE EVENT DATE: 20171006
